FAERS Safety Report 15826802 (Version 2)
Quarter: 2019Q1

REPORT INFORMATION
  Report Type: Spontaneous
  Country: CA (occurrence: CA)
  Receive Date: 20190115
  Receipt Date: 20190304
  Transmission Date: 20190417
  Serious: Yes (Death, Hospitalization, Other)
  Sender: FDA-Public Use
  Company Number: CA-PFIZER INC-2017292179

PATIENT
  Age: 66 Year
  Sex: Female

DRUGS (11)
  1. IBRANCE [Suspect]
     Active Substance: PALBOCICLIB
     Indication: BREAST CANCER METASTATIC
     Dosage: 125 MG, CYCLIC (DAILY FOR 21 DAYS, STOP FOR 7 DAYS THEN REPEAT)
     Route: 048
     Dates: start: 20170711
  2. MORPHINE SR [Concomitant]
     Active Substance: MORPHINE
     Indication: ARTHRALGIA
     Dosage: 5 MG, DAILY (EVERY NIGHT)
  3. MORPHINE SR [Concomitant]
     Active Substance: MORPHINE
     Dosage: 15 MG SR (2 TABLETS), BEDTIME
  4. TOVIAZ [Concomitant]
     Active Substance: FESOTERODINE FUMARATE
     Indication: URINARY INCONTINENCE
     Dosage: UNK
  5. IBRANCE [Suspect]
     Active Substance: PALBOCICLIB
     Dosage: 100 MG, CYCLIC (DAILY FOR 21 DAYS, STOP FOR 7 DAYS THEN REPEAT)
     Route: 048
  6. LETROZOLE. [Concomitant]
     Active Substance: LETROZOLE
     Dosage: 2.5 MG, 1X/DAY
  7. XGEVA [Concomitant]
     Active Substance: DENOSUMAB
     Dosage: CYCLIC (INJECTION EVERY 4 MONTHS)
  8. LORAZEPAM. [Concomitant]
     Active Substance: LORAZEPAM
     Dosage: 1 MG (3TABLETS), AS NEEDED
     Route: 060
  9. ATIVAN [Concomitant]
     Active Substance: LORAZEPAM
     Indication: ANXIETY
     Dosage: 1MG (3 TABLETAS AS NEEDED)
     Route: 060
  10. PANTOPRAZOLE [Concomitant]
     Active Substance: PANTOPRAZOLE
     Indication: HIATUS HERNIA
     Dosage: UNK, DAILY (EVERY MORNING)
  11. VITAMIN D [Concomitant]
     Active Substance: CHOLECALCIFEROL
     Dosage: 1000 IU, DAILY

REACTIONS (11)
  - Neutropenia [Unknown]
  - Infection [Unknown]
  - Fall [Unknown]
  - Somnolence [Recovering/Resolving]
  - Nausea [Unknown]
  - Balance disorder [Unknown]
  - Fatigue [Unknown]
  - Urinary tract infection [Recovered/Resolved]
  - Pyrexia [Recovered/Resolved]
  - Chills [Recovered/Resolved]
  - Neoplasm progression [Fatal]

NARRATIVE: CASE EVENT DATE: 2017
